FAERS Safety Report 9023775 (Version 2)
Quarter: 2013Q1

REPORT INFORMATION
  Report Type: Spontaneous
  Country: US (occurrence: US)
  Receive Date: 20130121
  Receipt Date: 20130211
  Transmission Date: 20140127
  Serious: No
  Sender: FDA-Public Use
  Company Number: US-PFIZER INC-2013024217

PATIENT
  Age: 56 Year
  Sex: Male
  Weight: 86.2 kg

DRUGS (3)
  1. CHANTIX [Suspect]
     Indication: SMOKING CESSATION THERAPY
     Dosage: 0.5 MG, DAILY
     Dates: start: 20101011
  2. CHANTIX [Suspect]
     Dosage: 0.5 MG, 2X/DAY
  3. CHANTIX [Suspect]
     Dosage: 1 MG, 2X/DAY

REACTIONS (1)
  - Abnormal dreams [Recovered/Resolved]
